FAERS Safety Report 15018427 (Version 2)
Quarter: 2018Q2

REPORT INFORMATION
  Report Type: Spontaneous
  Country: JP (occurrence: JP)
  Receive Date: 20180615
  Receipt Date: 20180620
  Transmission Date: 20180711
  Serious: Yes (Death, Hospitalization, Other)
  Sender: FDA-Public Use
  Company Number: JP-009507513-1805JPN001962J

PATIENT
  Age: 76 Year
  Sex: Male
  Weight: 69 kg

DRUGS (1)
  1. KEYTRUDA [Suspect]
     Active Substance: PEMBROLIZUMAB
     Indication: TRANSITIONAL CELL CARCINOMA
     Dosage: 200 MG, Q3W
     Route: 041
     Dates: start: 20180427, end: 20180427

REACTIONS (2)
  - Interstitial lung disease [Fatal]
  - Drug eruption [Unknown]

NARRATIVE: CASE EVENT DATE: 20180501
